FAERS Safety Report 6503660-4 (Version None)
Quarter: 2009Q4

REPORT INFORMATION
  Report Type: 
  Country: None (occurrence: None)
  Receive Date: 20091217
  Receipt Date: 20091208
  Transmission Date: 20100525
  Serious: Yes (Other)
  Sender: FDA-Public Use
  Company Number: US-JNJCH-2009031850

PATIENT
  Age: 47 Year
  Sex: Female
  Weight: 63.5 kg

DRUGS (3)
  1. LISTERINE WHITENING VIBRANT WHITE PRE-BRUSH RINSE [Suspect]
     Indication: DENTAL CARE
     Dosage: TEXT:ONCE AS DIRECTED
     Route: 050
  2. UNKNOWN MOUTH WASH [Concomitant]
     Indication: DRUG USE FOR UNKNOWN INDICATION
     Dosage: TEXT:UNSPECIFIED
     Route: 065
  3. ATIVAN [Concomitant]
     Indication: ANXIETY
     Dosage: TEXT:UNSPECIFIED
     Route: 048

REACTIONS (5)
  - GINGIVAL BLISTER [None]
  - OROPHARYNGEAL BLISTERING [None]
  - PRODUCT QUALITY ISSUE [None]
  - PRODUCT TAMPERING [None]
  - TONGUE BLISTERING [None]
